FAERS Safety Report 8017906-7 (Version None)
Quarter: 2012Q1

REPORT INFORMATION
  Report Type: 
  Country: None (occurrence: None)
  Receive Date: 20120103
  Receipt Date: 20111223
  Transmission Date: 20120608
  Serious: Yes (Hospitalization, Other)
  Sender: FDA-Public Use
  Company Number: US-JNJFOC-20111211024

PATIENT
  Sex: Female
  Weight: 84.37 kg

DRUGS (3)
  1. REMICADE [Suspect]
     Route: 042
     Dates: start: 20111001
  2. REMICADE [Suspect]
     Indication: PSORIATIC ARTHROPATHY
     Route: 042
     Dates: start: 20111102
  3. CORTISONE ACETATE [Suspect]
     Indication: PROPHYLAXIS
     Route: 042

REACTIONS (6)
  - INFUSION RELATED REACTION [None]
  - INFLUENZA LIKE ILLNESS [None]
  - MIGRAINE [None]
  - FEELING ABNORMAL [None]
  - DIARRHOEA [None]
  - OVARIAN CYST [None]
